FAERS Safety Report 25864108 (Version 1)
Quarter: 2025Q3

REPORT INFORMATION
  Report Type: Spontaneous
  Country: US (occurrence: US)
  Receive Date: 20250930
  Receipt Date: 20250930
  Transmission Date: 20251020
  Serious: Yes (Other)
  Sender: COOPERSURGICAL
  Company Number: US-COOPERSURGICAL, INC.-2025CPS006979

PATIENT
  Age: 31 Year
  Sex: Female
  Weight: 68.027 kg

DRUGS (1)
  1. PARAGARD T 380A [Suspect]
     Active Substance: COPPER
     Route: 015
     Dates: start: 20180228

REACTIONS (29)
  - Abortion induced [Recovered/Resolved]
  - Amniotic fluid volume decreased [Recovered/Resolved]
  - Salpingectomy [Recovered/Resolved]
  - Infertility female [Not Recovered/Not Resolved]
  - Reproductive complication associated with device [Not Recovered/Not Resolved]
  - Laparotomy [Recovered/Resolved]
  - Hysterotomy [Recovered/Resolved]
  - Intestinal perforation [Not Recovered/Not Resolved]
  - Intestinal resection [Recovered/Resolved]
  - Device breakage [Recovered/Resolved]
  - Foreign body in urogenital tract [Recovered/Resolved]
  - Complication of device removal [Recovered/Resolved]
  - Embedded device [Recovered/Resolved]
  - Pregnancy with contraceptive device [Recovered/Resolved]
  - Drug ineffective [Unknown]
  - Uterine perforation [Unknown]
  - Device dislocation [Recovered/Resolved]
  - Sepsis [Recovered/Resolved]
  - Psychological trauma [Not Recovered/Not Resolved]
  - Scar [Not Recovered/Not Resolved]
  - Headache [Not Recovered/Not Resolved]
  - Wound [Not Recovered/Not Resolved]
  - Asthenia [Unknown]
  - Iron deficiency anaemia [Unknown]
  - Emotional distress [Unknown]
  - Abdominal pain lower [Unknown]
  - Abdominal pain [Unknown]
  - Pain [Not Recovered/Not Resolved]
  - Unevaluable event [Unknown]

NARRATIVE: CASE EVENT DATE: 20200113
